FAERS Safety Report 9464871 (Version 1)
Quarter: 2013Q3

REPORT INFORMATION
  Report Type: Report from Study
  Country: DE (occurrence: DE)
  Receive Date: 20130819
  Receipt Date: 20130819
  Transmission Date: 20140515
  Serious: Yes (Hospitalization)
  Sender: FDA-Public Use
  Company Number: PHHO2013DE010504

PATIENT
  Age: 65 Year
  Sex: Male
  Weight: 75.9 kg

DRUGS (5)
  1. AMIODARONE [Suspect]
     Dosage: UNK
     Dates: end: 20121227
  2. PROGRAF [Suspect]
     Indication: RENAL TRANSPLANT
     Dosage: 1.5-0-1 MG
     Route: 048
     Dates: start: 20120318
  3. SIMULECT [Concomitant]
     Indication: RENAL TRANSPLANT
     Dosage: 20 MG, UNK
     Route: 042
     Dates: start: 20120318, end: 20120322
  4. MYFORTIC [Concomitant]
     Indication: RENAL TRANSPLANT
     Dosage: 720 MG, BID
     Route: 048
     Dates: start: 20120318
  5. PREDNISON [Concomitant]
     Indication: RENAL TRANSPLANT
     Dosage: 20 MG, QD
     Route: 048
     Dates: start: 20120319

REACTIONS (1)
  - Toxicity to various agents [Recovered/Resolved]
